FAERS Safety Report 25246800 (Version 1)
Quarter: 2025Q2

REPORT INFORMATION
  Report Type: Report from Study
  Country: US (occurrence: US)
  Receive Date: 20250428
  Receipt Date: 20250428
  Transmission Date: 20250717
  Serious: Yes (Other)
  Sender: ALEXION PHARMACEUTICALS
  Company Number: US-AstraZeneca-CH-00853956A

PATIENT
  Age: 44 Year
  Weight: 87.089 kg

DRUGS (2)
  1. TEZEPELUMAB [Suspect]
     Active Substance: TEZEPELUMAB
     Indication: Asthma
     Dosage: 210 MILLIGRAM, Q4W
  2. TEZEPELUMAB [Suspect]
     Active Substance: TEZEPELUMAB

REACTIONS (17)
  - Dyspnoea [Unknown]
  - Cough [Unknown]
  - Wheezing [Unknown]
  - Productive cough [Unknown]
  - Discomfort [Unknown]
  - Right atrial dilatation [Unknown]
  - Tricuspid valve incompetence [Unknown]
  - Supraventricular tachycardia [Unknown]
  - Dilated cardiomyopathy [Unknown]
  - Vena cava embolism [Unknown]
  - Mitral valve thickening [Unknown]
  - Tricuspid valve disease [Unknown]
  - Anxiety [Unknown]
  - Hypertension [Unknown]
  - Emphysema [Unknown]
  - Cholecystitis acute [Unknown]
  - Insurance issue [Unknown]
